FAERS Safety Report 11677957 (Version 3)
Quarter: 2015Q4

REPORT INFORMATION
  Report Type: Spontaneous
  Country: TR (occurrence: TR)
  Receive Date: 20151028
  Receipt Date: 20151124
  Transmission Date: 20160304
  Serious: Yes (Other)
  Sender: FDA-Public Use
  Company Number: TR-ABBVIE-15P-161-1488406-00

PATIENT
  Age: 62 Year
  Sex: Female
  Weight: 65 kg

DRUGS (4)
  1. COUMADIN [Concomitant]
     Active Substance: WARFARIN SODIUM
     Indication: PRODUCT USED FOR UNKNOWN INDICATION
     Route: 048
  2. RIBAVIRIN. [Concomitant]
     Active Substance: RIBAVIRIN
     Indication: PRODUCT USED FOR UNKNOWN INDICATION
     Dosage: 200MG/ BEFORE 4 HOURS EVERY DIALYSE
     Route: 048
  3. RENAGEL [Concomitant]
     Active Substance: SEVELAMER HYDROCHLORIDE
     Indication: CHRONIC KIDNEY DISEASE
     Route: 048
  4. VIEKIRAX [Suspect]
     Active Substance: OMBITASVIR\PARITAPREVIR\RITONAVIR
     Indication: CHRONIC HEPATITIS
     Dosage: 2 TAB AM 12.5/75/50 MG
     Route: 048
     Dates: start: 20150903

REACTIONS (13)
  - Palpitations [Recovered/Resolved]
  - Tachycardia [Recovered/Resolved]
  - Insomnia [Recovering/Resolving]
  - Chest pain [Recovered/Resolved]
  - Tachycardia [Recovered/Resolved]
  - Pruritus generalised [Recovering/Resolving]
  - Fatigue [Recovering/Resolving]
  - Chest pain [Recovered/Resolved]
  - Palpitations [Recovered/Resolved]
  - Tachycardia [Recovered/Resolved]
  - Asthenia [Recovering/Resolving]
  - Palpitations [Recovered/Resolved]
  - Chest pain [Recovered/Resolved]

NARRATIVE: CASE EVENT DATE: 20150917
